FAERS Safety Report 13964342 (Version 2)
Quarter: 2017Q4

REPORT INFORMATION
  Report Type: Spontaneous
  Country: US (occurrence: US)
  Receive Date: 20170913
  Receipt Date: 20171130
  Transmission Date: 20180320
  Serious: Yes (Other)
  Sender: FDA-Public Use
  Company Number: US-SA-2017SA106938

PATIENT
  Age: 46 Year
  Sex: Female
  Weight: 54.88 kg

DRUGS (9)
  1. METFORMIN [Concomitant]
     Active Substance: METFORMIN HYDROCHLORIDE
     Route: 065
     Dates: start: 2003, end: 20161026
  2. PERTUZUMAB. [Concomitant]
     Active Substance: PERTUZUMAB
  3. RECLAST [Concomitant]
     Active Substance: ZOLEDRONIC ACID
  4. WELLBUTRIN [Concomitant]
     Active Substance: BUPROPION HYDROCHLORIDE
     Route: 065
     Dates: start: 2004, end: 2016
  5. PANTHENOL/RETINOL/THIAMINE HYDROCHLORIDE/ASCORBIC ACID/ERGOCALCIFEROL/FOLIC ACID/RIBOFLAVIN/NICOTINA [Concomitant]
     Route: 065
     Dates: start: 2014, end: 2016
  6. TAXOTERE [Suspect]
     Active Substance: DOCETAXEL
     Indication: BREAST CANCER FEMALE
     Dosage: 117.8 - 118.2MG
     Route: 051
     Dates: start: 20160526, end: 20160526
  7. TAXOTERE [Suspect]
     Active Substance: DOCETAXEL
     Indication: BREAST CANCER FEMALE
     Dosage: 117.8 - 118.2MG
     Route: 051
     Dates: start: 20160210, end: 20160210
  8. TRASTUZUMAB. [Concomitant]
     Active Substance: TRASTUZUMAB
  9. DEXAMETHASONE. [Concomitant]
     Active Substance: DEXAMETHASONE
     Route: 065
     Dates: start: 201601, end: 201606

REACTIONS (2)
  - Alopecia [Not Recovered/Not Resolved]
  - Psychological trauma [Unknown]

NARRATIVE: CASE EVENT DATE: 201611
